FAERS Safety Report 13805572 (Version 1)
Quarter: 2017Q3

REPORT INFORMATION
  Report Type: Spontaneous
  Country: US (occurrence: US)
  Receive Date: 20170728
  Receipt Date: 20170728
  Transmission Date: 20171127
  Serious: Yes (Other)
  Sender: FDA-Public Use
  Company Number: PHHY2017US107856

PATIENT
  Age: 71 Year
  Sex: Male

DRUGS (4)
  1. AMOXICILLIN+CLAVULANATE [Suspect]
     Active Substance: AMOXICILLIN\CLAVULANATE POTASSIUM
     Indication: GASTROINTESTINAL BACTERIAL OVERGROWTH
     Dosage: 500/125 MG, BID
     Route: 065
  2. PREDNISONE. [Concomitant]
     Active Substance: PREDNISONE
     Indication: CROHN^S DISEASE
     Route: 065
  3. REMICADE [Concomitant]
     Active Substance: INFLIXIMAB
     Indication: CROHN^S DISEASE
     Route: 065
  4. METRONIDAZOLE. [Suspect]
     Active Substance: METRONIDAZOLE
     Indication: GASTROINTESTINAL BACTERIAL OVERGROWTH
     Dosage: 500 MG, TID
     Route: 065

REACTIONS (6)
  - Weight decreased [Unknown]
  - Thinking abnormal [Unknown]
  - Gait disturbance [Unknown]
  - Fall [Unknown]
  - Alcohol poisoning [Unknown]
  - Dysarthria [Unknown]
